FAERS Safety Report 18710562 (Version 1)
Quarter: 2021Q1

REPORT INFORMATION
  Report Type: Other
  Country: IT (occurrence: IT)
  Receive Date: 20210107
  Receipt Date: 20210107
  Transmission Date: 20210419
  Serious: Yes (Death, Other)
  Sender: FDA-Public Use
  Company Number: IT-ROCHE-2744087

PATIENT
  Age: 43 Year
  Sex: Male

DRUGS (4)
  1. AZITHROMYCIN DIHYDRATE. [Suspect]
     Active Substance: AZITHROMYCIN DIHYDRATE
     Indication: OFF LABEL USE
  2. AMOXICILLIN;CLAVULANATE POTASSIUM [Suspect]
     Active Substance: AMOXICILLIN\CLAVULANATE POTASSIUM
     Indication: COVID-19
     Dosage: UNK, UNKNOWN
     Route: 065
  3. TOCILIZUMAB. [Suspect]
     Active Substance: TOCILIZUMAB
     Indication: COVID-19
     Dosage: UNK UNK, UNKNOWN
     Route: 065
  4. AZITHROMYCIN DIHYDRATE. [Suspect]
     Active Substance: AZITHROMYCIN DIHYDRATE
     Indication: COVID-19
     Dosage: UNK, UNKNOWN
     Route: 065

REACTIONS (8)
  - Cardiogenic shock [Fatal]
  - Oxygen saturation decreased [Unknown]
  - Tachypnoea [Unknown]
  - Blood lactate dehydrogenase increased [Unknown]
  - Myocarditis [Fatal]
  - Fibrin D dimer increased [Unknown]
  - C-reactive protein increased [Unknown]
  - Dyspnoea [Unknown]
